FAERS Safety Report 14477179 (Version 1)
Quarter: 2018Q1

REPORT INFORMATION
  Report Type: Report from Study
  Country: US (occurrence: US)
  Receive Date: 20180201
  Receipt Date: 20180201
  Transmission Date: 20180509
  Serious: No
  Sender: FDA-Public Use
  Company Number: US-EXELIXIS-CABO-17010064

PATIENT
  Sex: Female
  Weight: 81.63 kg

DRUGS (20)
  1. CEPHALEXIN. [Concomitant]
     Active Substance: CEPHALEXIN
  2. FUROSEMIDE. [Concomitant]
     Active Substance: FUROSEMIDE
  3. HYDROCODONE BITARTRATE AND ACETAMINOPHEN [Concomitant]
     Active Substance: ACETAMINOPHEN\HYDROCODONE BITARTRATE
  4. CREON [Concomitant]
     Active Substance: PANCRELIPASE AMYLASE\PANCRELIPASE LIPASE\PANCRELIPASE PROTEASE
  5. AMLODIPINE [Concomitant]
     Active Substance: AMLODIPINE BESYLATE
  6. LYRICA [Concomitant]
     Active Substance: PREGABALIN
  7. FLUOCINONIDE. [Concomitant]
     Active Substance: FLUOCINONIDE
  8. CABOMETYX [Suspect]
     Active Substance: CABOZANTINIB S-MALATE
     Indication: RENAL CELL CARCINOMA
     Dosage: 40 MG, QD
     Route: 048
     Dates: start: 201612
  9. TRIAMCINOLONE ACETONIDE. [Concomitant]
     Active Substance: TRIAMCINOLONE ACETONIDE
  10. CABOMETYX [Suspect]
     Active Substance: CABOZANTINIB S-MALATE
     Dosage: 20 MG, QD
     Route: 048
  11. MUPIROCIN. [Concomitant]
     Active Substance: MUPIROCIN
  12. CARAFATE [Concomitant]
     Active Substance: SUCRALFATE
  13. LANTUS [Concomitant]
     Active Substance: INSULIN GLARGINE
  14. BENADRYL [Concomitant]
     Active Substance: DIPHENHYDRAMINE HYDROCHLORIDE
  15. METHYLPREDNISOLONE. [Concomitant]
     Active Substance: METHYLPREDNISOLONE
  16. ONDANSETRON [Concomitant]
     Active Substance: ONDANSETRON
  17. HUMALOG [Concomitant]
     Active Substance: INSULIN LISPRO
  18. MULTIVITAMIN [Concomitant]
     Active Substance: VITAMINS
  19. SUCRALFATE. [Concomitant]
     Active Substance: SUCRALFATE
  20. BANOPHEN [Concomitant]
     Active Substance: DIPHENHYDRAMINE HYDROCHLORIDE

REACTIONS (1)
  - Limb injury [Unknown]
